FAERS Safety Report 6546444-3 (Version None)
Quarter: 2010Q1

REPORT INFORMATION
  Report Type: 
  Country: None (occurrence: None)
  Receive Date: 20100122
  Receipt Date: 20100111
  Transmission Date: 20100710
  Serious: Yes (Other)
  Sender: FDA-Public Use
  Company Number: PHEH2010US00622

PATIENT
  Sex: Female

DRUGS (2)
  1. GENTEAL (NVO) [Suspect]
  2. RESTASIS [Concomitant]

REACTIONS (1)
  - EYE OPERATION [None]
